FAERS Safety Report 9825270 (Version 1)
Quarter: 2014Q1

REPORT INFORMATION
  Report Type: Spontaneous
  Country: DE (occurrence: DE)
  Receive Date: 20140117
  Receipt Date: 20140117
  Transmission Date: 20141002
  Serious: Yes (Other)
  Sender: FDA-Public Use
  Company Number: GXKR2014DE000560

PATIENT
  Sex: 0

DRUGS (4)
  1. FLUOXETIN HEXAL [Suspect]
     Indication: DEPRESSION
     Route: 048
     Dates: start: 20130827
  2. DICLOFENAC [Suspect]
     Indication: BACK PAIN
     Route: 048
     Dates: start: 201312
  3. VALETTE [Concomitant]
     Indication: CONTRACEPTION
     Dosage: 1 DF, QD
     Route: 048
  4. L-THYROXIN [Concomitant]
     Dosage: 88 UG, UNK
     Route: 048

REACTIONS (4)
  - Strabismus [Recovered/Resolved]
  - Muscle spasms [Recovered/Resolved]
  - Muscle twitching [Recovered/Resolved]
  - Tremor [Recovered/Resolved]
